FAERS Safety Report 22091586 (Version 3)
Quarter: 2023Q2

REPORT INFORMATION
  Report Type: Report from Study
  Country: BE (occurrence: BE)
  Receive Date: 20230314
  Receipt Date: 20230405
  Transmission Date: 20230721
  Serious: Yes (Hospitalization)
  Sender: FDA-Public Use
  Company Number: BE-ABBVIE-4338963

PATIENT
  Sex: Female

DRUGS (4)
  1. HUMIRA [Suspect]
     Active Substance: ADALIMUMAB
     Indication: Crohn^s disease
     Route: 058
  2. HUMIRA [Suspect]
     Active Substance: ADALIMUMAB
     Dosage: FREQUENCY TEXT: FIRST WEEK
     Route: 058
     Dates: start: 20230217, end: 20230217
  3. HUMIRA [Suspect]
     Active Substance: ADALIMUMAB
     Dosage: FREQUENCY TEXT: SECOND WEEK
     Route: 058
  4. ENTOCORT [Concomitant]
     Active Substance: BUDESONIDE
     Indication: Crohn^s disease
     Dosage: 6 MILLIGRAM
     Route: 048

REACTIONS (13)
  - Abdominal pain [Recovered/Resolved]
  - Small intestinal stenosis [Not Recovered/Not Resolved]
  - Gastric dilatation [Recovered/Resolved]
  - Constipation [Recovered/Resolved]
  - Anxiety [Not Recovered/Not Resolved]
  - Infrequent bowel movements [Recovered/Resolved]
  - Ascites [Not Recovered/Not Resolved]
  - Eye swelling [Recovered/Resolved]
  - Frequent bowel movements [Recovered/Resolved]
  - Inflammation [Not Recovered/Not Resolved]
  - Frequent bowel movements [Not Recovered/Not Resolved]
  - Terminal ileitis [Unknown]
  - Gastrointestinal sounds abnormal [Recovered/Resolved]

NARRATIVE: CASE EVENT DATE: 20230301
